FAERS Safety Report 5426758-0 (Version None)
Quarter: 2007Q3

REPORT INFORMATION
  Report Type: 
  Country: None (occurrence: None)
  Receive Date: 20070731
  Receipt Date: 20070417
  Transmission Date: 20080115
  Serious: No
  Sender: FDA-Public Use
  Company Number: 2007PV032432

PATIENT
  Age: 57 Year
  Sex: Male

DRUGS (5)
  1. EXENATIDE(EXENATIDE) PEN,DISPOSABLE [Suspect]
     Indication: TYPE 2 DIABETES MELLITUS
     Dosage: 5 UG, 2/D, SUBCUTANEOUS 10 UG, 2/D
     Route: 058
     Dates: start: 20070301, end: 20070413
  2. EXENATIDE(EXENATIDE) PEN,DISPOSABLE [Suspect]
     Indication: TYPE 2 DIABETES MELLITUS
     Dosage: 5 UG, 2/D, SUBCUTANEOUS 10 UG, 2/D
     Route: 058
     Dates: start: 20070414
  3. GLIPIZIDE [Concomitant]
  4. METFORMIN HCL [Concomitant]
  5. EXENATIDE(EXENATIDE) PEN,DISPOSABLE [Suspect]

REACTIONS (4)
  - DRUG INEFFECTIVE [None]
  - EXOSTOSIS [None]
  - INJECTION SITE PAIN [None]
  - STRESS [None]
